FAERS Safety Report 4804232-X (Version None)
Quarter: 2005Q4

REPORT INFORMATION
  Report Type: 
  Country: None (occurrence: None)
  Receive Date: 20051017
  Receipt Date: 20051003
  Transmission Date: 20060501
  Serious: Yes (Death)
  Sender: FDA-Public Use
  Company Number: B0395885A

PATIENT
  Age: 78 Year
  Sex: 0

DRUGS (2)
  1. LANOXIN (FORMULTION UNKNOWN) [Suspect]
     Indication: DRUG USE FOR UNKNOWN INDICATION
     Dosage: ORAL
     Route: 048
  2. LORAZEPAM [Suspect]
     Indication: DRUG USE FOR UNKNOWN INDICATION

REACTIONS (2)
  - CARDIOACTIVE DRUG LEVEL ABOVE THERAPEUTIC [None]
  - COMPLETED SUICIDE [None]
